FAERS Safety Report 11864015 (Version 1)
Quarter: 2015Q4

REPORT INFORMATION
  Report Type: Spontaneous
  Country: US (occurrence: US)
  Receive Date: 20151223
  Receipt Date: 20151223
  Transmission Date: 20160305
  Serious: Yes (Other)
  Sender: FDA-Public Use
  Company Number: US-GLAXOSMITHKLINE-US2015180270

PATIENT
  Age: 77 Year
  Sex: Male

DRUGS (9)
  1. RYTHMOL [Suspect]
     Active Substance: PROPAFENONE HYDROCHLORIDE
     Indication: ATRIAL FLUTTER
  2. RYTHMOL SR [Suspect]
     Active Substance: PROPAFENONE HYDROCHLORIDE
     Dosage: 225 MG, BID
     Route: 048
     Dates: start: 20151219
  3. ATORVASTATIN [Concomitant]
     Active Substance: ATORVASTATIN
  4. TESTOSTERONE. [Concomitant]
     Active Substance: TESTOSTERONE
     Dosage: UNK
     Dates: start: 201201
  5. METOPROLOL [Concomitant]
     Active Substance: METOPROLOL
  6. RYTHMOL [Suspect]
     Active Substance: PROPAFENONE HYDROCHLORIDE
     Indication: ATRIAL FIBRILLATION
     Dosage: 150 MG, TID
     Route: 048
     Dates: start: 201111, end: 20151218
  7. PROPAFENONE HYDROCHLORIDE. [Suspect]
     Active Substance: PROPAFENONE HYDROCHLORIDE
     Dosage: UNK
     Dates: end: 20151218
  8. CLOPIDOGREL [Concomitant]
     Active Substance: CLOPIDOGREL BISULFATE
  9. ASPIRIN. [Concomitant]
     Active Substance: ASPIRIN

REACTIONS (9)
  - Constipation [Not Recovered/Not Resolved]
  - Drug ineffective [Unknown]
  - Product substitution issue [Unknown]
  - Platelet count decreased [Not Recovered/Not Resolved]
  - Thrombocytopenia [Not Recovered/Not Resolved]
  - Supraventricular tachycardia [Unknown]
  - Myelodysplastic syndrome [Unknown]
  - Blood testosterone decreased [Unknown]
  - Arrhythmia [Unknown]

NARRATIVE: CASE EVENT DATE: 201112
